FAERS Safety Report 8592237-5 (Version None)
Quarter: 2012Q3

REPORT INFORMATION
  Report Type: 
  Country: None (occurrence: None)
  Receive Date: 20120814
  Receipt Date: 20120806
  Transmission Date: 20120928
  Serious: Yes (Hospitalization)
  Sender: FDA-Public Use
  Company Number: US-US-EMD SERONO, INC.-7137528

PATIENT
  Sex: Male

DRUGS (2)
  1. REBIF [Suspect]
     Indication: PRODUCT USED FOR UNKNOWN INDICATION
     Dates: end: 20120228
  2. REBIF [Suspect]
     Dates: start: 20120701, end: 20120729

REACTIONS (2)
  - KNEE ARTHROPLASTY [None]
  - NOSOCOMIAL INFECTION [None]
